FAERS Safety Report 20824546 (Version 1)
Quarter: 2022Q2

REPORT INFORMATION
  Report Type: Spontaneous
  Country: ES (occurrence: ES)
  Receive Date: 20220513
  Receipt Date: 20220513
  Transmission Date: 20220721
  Serious: Yes (Hospitalization, Other)
  Sender: FDA-Public Use
  Company Number: ES-SUN PHARMACEUTICAL INDUSTRIES LTD-2022R1-335905

PATIENT
  Age: 28 Year
  Sex: Female

DRUGS (1)
  1. LACOSAMIDE [Suspect]
     Active Substance: LACOSAMIDE
     Indication: Tuberous sclerosis complex
     Dosage: 250 MILLIGRAM, BID
     Route: 065

REACTIONS (4)
  - Exposure during pregnancy [Unknown]
  - Migraine [Unknown]
  - Premature rupture of membranes [Unknown]
  - Premature delivery [Unknown]
